FAERS Safety Report 8485576-X (Version None)
Quarter: 2012Q3

REPORT INFORMATION
  Report Type: 
  Country: None (occurrence: None)
  Receive Date: 20120703
  Receipt Date: 20120629
  Transmission Date: 20120928
  Serious: Yes (Death)
  Sender: FDA-Public Use
  Company Number: FR-SHIRE-SPV1-2012-00603

PATIENT
  Sex: Female

DRUGS (8)
  1. ANAGRELIDE HYDROCHLORIDE [Suspect]
     Indication: THROMBOCYTOSIS
     Dosage: 0.5 MG, 1X/DAY:QD
     Route: 048
     Dates: start: 20080506, end: 20120205
  2. RABEPRAZOLE SODIUM [Concomitant]
     Indication: PRODUCT USED FOR UNKNOWN INDICATION
     Dosage: 10 MG, 1X/DAY:QD
     Route: 048
     Dates: start: 20111101, end: 20120205
  3. LYRICA [Concomitant]
     Indication: PRODUCT USED FOR UNKNOWN INDICATION
     Dosage: 25 MG, 1X/DAY:QD
     Route: 048
     Dates: start: 20111101, end: 20120205
  4. RAMIPRIL [Concomitant]
     Indication: PRODUCT USED FOR UNKNOWN INDICATION
     Dosage: 1.25 MG, 1X/DAY:QD
     Dates: start: 20111101, end: 20120205
  5. ASPIRIN [Suspect]
     Indication: THROMBOCYTOSIS
     Dosage: 100 MG, 1X/DAY:QD
     Route: 048
     Dates: end: 20120205
  6. ARANESP [Concomitant]
     Indication: ANAEMIA
     Dosage: 0.142 DF, 1X/WEEK
     Dates: start: 20110711, end: 20120205
  7. LASIX [Concomitant]
     Indication: PRODUCT USED FOR UNKNOWN INDICATION
     Dosage: 20 MG, 3X/DAY:TID
     Route: 048
     Dates: start: 20080101, end: 20120205
  8. AMLODIPINE BESYLATE [Concomitant]
     Indication: PRODUCT USED FOR UNKNOWN INDICATION
     Dosage: 5 MG, 1X/DAY:QD
     Route: 048
     Dates: start: 20110725, end: 20120205

REACTIONS (3)
  - COMA [None]
  - SUBDURAL HAEMATOMA [None]
  - CEREBRAL HAEMORRHAGE [None]
